FAERS Safety Report 8740231 (Version 2)
Quarter: 2013Q4

REPORT INFORMATION
  Report Type: Spontaneous
  Country: US (occurrence: US)
  Receive Date: 20120823
  Receipt Date: 20131101
  Transmission Date: 20140711
  Serious: No
  Sender: FDA-Public Use
  Company Number: US-009507513-1208USA002416

PATIENT
  Age: 55 Year
  Sex: Male

DRUGS (5)
  1. VICTRELIS [Suspect]
     Indication: HEPATITIS C
     Dosage: 800 MG, TID
     Route: 048
     Dates: start: 20120727
  2. PEGINTRON [Suspect]
     Route: 058
  3. MAPAP PM [Concomitant]
  4. VITAMINS (UNSPECIFIED) [Concomitant]
  5. RIBAPAK [Concomitant]

REACTIONS (1)
  - Fatigue [Not Recovered/Not Resolved]
